FAERS Safety Report 20607599 (Version 1)
Quarter: 2022Q1

REPORT INFORMATION
  Report Type: Spontaneous
  Country: US (occurrence: None)
  Receive Date: 20220317
  Receipt Date: 20220317
  Transmission Date: 20220424
  Serious: Yes (Death, Hospitalization)
  Sender: FDA-Public Use
  Company Number: None

PATIENT
  Age: 72 Year
  Sex: Male
  Weight: 75 kg

DRUGS (4)
  1. ABIRATERONE ACETATE [Suspect]
     Active Substance: ABIRATERONE ACETATE
     Dates: end: 20220118
  2. LEUPROLIDE ACETATE [Suspect]
     Active Substance: LEUPROLIDE ACETATE
     Dates: end: 20211214
  3. PREDNISONE [Suspect]
     Active Substance: PREDNISONE
     Dates: end: 20220120
  4. PREDNISONE [Suspect]
     Active Substance: PREDNISONE

REACTIONS (4)
  - Diastolic dysfunction [None]
  - Interstitial lung disease [None]
  - Acute respiratory failure [None]
  - Lower respiratory tract infection [None]

NARRATIVE: CASE EVENT DATE: 20220120
